FAERS Safety Report 11102927 (Version 1)
Quarter: 2015Q2

REPORT INFORMATION
  Report Type: Spontaneous
  Country: US (occurrence: None)
  Receive Date: 20150508
  Receipt Date: 20150508
  Transmission Date: 20150821
  Serious: No
  Sender: FDA-Public Use
  Company Number: None

PATIENT
  Age: 22 Year
  Sex: Male

DRUGS (1)
  1. TECFIDERA [Suspect]
     Active Substance: DIMETHYL FUMARATE
     Indication: MULTIPLE SCLEROSIS
     Dosage: 240MG, TWICE DAILY, BY MOUTH
     Route: 048
     Dates: start: 20150209

REACTIONS (3)
  - Balance disorder [None]
  - Coordination abnormal [None]
  - Amnesia [None]

NARRATIVE: CASE EVENT DATE: 20140506
